FAERS Safety Report 5889621-7 (Version None)
Quarter: 2008Q3

REPORT INFORMATION
  Report Type: 
  Country: None (occurrence: None)
  Receive Date: 20080919
  Receipt Date: 20080917
  Transmission Date: 20090109
  Serious: Yes (Life-Threatening, Other)
  Sender: FDA-Public Use
  Company Number: B0534935A

PATIENT
  Age: 71 Year
  Sex: Male

DRUGS (19)
  1. RELIFEN [Suspect]
     Dosage: 800MG PER DAY
     Route: 048
     Dates: start: 20080815, end: 20080818
  2. CALONAL [Suspect]
     Indication: DRUG USE FOR UNKNOWN INDICATION
     Dosage: 1800MG PER DAY
     Route: 048
     Dates: start: 20080729, end: 20080820
  3. RABEPRAZOLE SODIUM [Suspect]
     Dosage: 10MG PER DAY
     Route: 048
     Dates: start: 20080811, end: 20080820
  4. WARFARIN SODIUM [Suspect]
     Indication: THROMBOSIS PROPHYLAXIS
     Dosage: 3MG PER DAY
     Route: 048
  5. WARFARIN SODIUM [Suspect]
     Dosage: 4MG PER DAY
     Route: 048
     Dates: start: 20080808, end: 20080820
  6. THEO-DUR [Concomitant]
     Indication: DRUG USE FOR UNKNOWN INDICATION
     Dosage: 200MG PER DAY
     Route: 048
     Dates: end: 20080819
  7. THYRADIN [Concomitant]
     Indication: DRUG USE FOR UNKNOWN INDICATION
     Dosage: 25MCG PER DAY
     Route: 048
     Dates: end: 20080819
  8. AMOBAN [Concomitant]
     Dosage: 15MG PER DAY
     Route: 048
     Dates: end: 20080819
  9. GABAPENTIN [Concomitant]
     Dosage: 300MG PER DAY
     Route: 048
     Dates: start: 20080829
  10. WARFARIN SODIUM [Concomitant]
     Indication: DRUG USE FOR UNKNOWN INDICATION
     Route: 048
     Dates: end: 20080818
  11. PURSENNID [Concomitant]
     Indication: CONSTIPATION
     Dosage: 12MG PER DAY
     Route: 058
  12. DUROTEP [Concomitant]
     Route: 058
     Dates: start: 20080801
  13. PIPERACILLIN SODIUM [Concomitant]
     Dosage: 9G PER DAY
     Route: 042
     Dates: start: 20080812, end: 20080818
  14. ASCORBIC ACID [Concomitant]
     Route: 065
     Dates: start: 20080812, end: 20080818
  15. FLAVINE ADENINE DINUCLEOTIDE [Concomitant]
     Route: 065
     Dates: start: 20080812, end: 20080818
  16. THIAMINE DISULFIDE [Concomitant]
     Dates: start: 20080812, end: 20080818
  17. ZOMETA [Concomitant]
     Indication: DRUG USE FOR UNKNOWN INDICATION
     Dosage: 4MG PER DAY
     Route: 065
  18. SILODOSIN [Concomitant]
     Dosage: 8MG PER DAY
     Route: 048
     Dates: start: 20080801, end: 20080808
  19. LAMISIL [Concomitant]
     Route: 058
     Dates: start: 20080801

REACTIONS (3)
  - GASTROINTESTINAL HAEMORRHAGE [None]
  - HAEMOPTYSIS [None]
  - RESPIRATORY TRACT HAEMORRHAGE [None]
